FAERS Safety Report 22110584 (Version 1)
Quarter: 2023Q1

REPORT INFORMATION
  Report Type: Spontaneous
  Country: NO (occurrence: NO)
  Receive Date: 20230317
  Receipt Date: 20230317
  Transmission Date: 20230417
  Serious: Yes (Hospitalization)
  Sender: FDA-Public Use
  Company Number: NO-ELI_LILLY_AND_COMPANY-NO202303005698

PATIENT
  Age: 0 Year
  Sex: Female

DRUGS (4)
  1. STRATTERA [Suspect]
     Active Substance: ATOMOXETINE HYDROCHLORIDE
     Indication: Attention deficit hyperactivity disorder
     Dosage: 100 MG, UNKNOWN)IST TRIMESTER
     Route: 065
     Dates: start: 202205, end: 202208
  2. STRATTERA [Suspect]
     Active Substance: ATOMOXETINE HYDROCHLORIDE
     Dosage: 60 MG, UNKNOWN(2ND TRIMESTER)
     Route: 065
     Dates: start: 202208, end: 202211
  3. STRATTERA [Suspect]
     Active Substance: ATOMOXETINE HYDROCHLORIDE
     Dosage: 30 MG, UNKNOWN(THIRD TRIMESTER)
     Route: 065
     Dates: start: 202211, end: 20230115
  4. STRATTERA [Suspect]
     Active Substance: ATOMOXETINE HYDROCHLORIDE
     Dosage: 25 MG, UNKNOWN
     Route: 065
     Dates: start: 20230115

REACTIONS (7)
  - Agitation neonatal [Recovering/Resolving]
  - Atrial flutter [Recovering/Resolving]
  - Respiratory rate increased [Recovering/Resolving]
  - Infant irritability [Recovering/Resolving]
  - High-pitched crying [Recovering/Resolving]
  - Crying [Recovering/Resolving]
  - Exposure during pregnancy [Recovering/Resolving]

NARRATIVE: CASE EVENT DATE: 20230228
